FAERS Safety Report 18325713 (Version 1)
Quarter: 2020Q3

REPORT INFORMATION
  Report Type: Spontaneous
  Country: HU (occurrence: HU)
  Receive Date: 20200929
  Receipt Date: 20200929
  Transmission Date: 20201105
  Serious: Yes (Other)
  Sender: FDA-Public Use
  Company Number: HU-PFIZER INC-2020375703

PATIENT
  Age: 30 Year
  Sex: Male
  Weight: 93 kg

DRUGS (11)
  1. ETORICOXIB. [Suspect]
     Active Substance: ETORICOXIB
     Dosage: 90 MG, DAILY
     Route: 065
  2. DICLOFENAC [Suspect]
     Active Substance: DICLOFENAC
     Dosage: 50 MG, 3X/DAY
     Route: 065
  3. CERTOLIZUMAB PEGOL [Concomitant]
     Active Substance: CERTOLIZUMAB PEGOL
     Dosage: UNK
     Route: 065
     Dates: start: 20190226
  4. SECUKINUMAB. [Suspect]
     Active Substance: SECUKINUMAB
     Indication: PSORIATIC ARTHROPATHY
     Dosage: 150 MG, WEEKLY
     Route: 058
     Dates: start: 201911, end: 201912
  5. METHOTREXATE SODIUM. [Suspect]
     Active Substance: METHOTREXATE SODIUM
     Dosage: 10 MG, WEEKLY
     Route: 065
     Dates: end: 2020
  6. SECUKINUMAB. [Suspect]
     Active Substance: SECUKINUMAB
     Dosage: 150 MG, MONTHLY
     Route: 058
     Dates: end: 2020
  7. NIMESULIDE [Concomitant]
     Active Substance: NIMESULIDE
     Dosage: 100 MG, 2X/DAY
     Route: 065
  8. DICLOFENAC/ORPHENADRINE [Concomitant]
     Indication: ANALGESIC THERAPY
     Dosage: 5 TIMES (INFUSION)
     Route: 065
  9. METHOTREXATE SODIUM. [Suspect]
     Active Substance: METHOTREXATE SODIUM
     Dosage: 15 MG, WEEKLY
     Route: 065
     Dates: start: 2020
  10. TRAMADOL. [Suspect]
     Active Substance: TRAMADOL
     Dosage: UNK UNK, DAILY
     Route: 065
  11. SECUKINUMAB. [Suspect]
     Active Substance: SECUKINUMAB
     Dosage: 300 MG, MONTHLY
     Route: 065
     Dates: start: 2020

REACTIONS (14)
  - Arthralgia [Unknown]
  - Ligament calcification [Unknown]
  - Ankylosing spondylitis [Unknown]
  - Skin exfoliation [Recovering/Resolving]
  - Neck pain [Unknown]
  - Psoriatic arthropathy [Unknown]
  - Body mass index abnormal [Unknown]
  - Back pain [Recovering/Resolving]
  - Facial paralysis [Unknown]
  - Spinal pain [Recovered/Resolved]
  - Sacroiliitis [Unknown]
  - Pustular psoriasis [Unknown]
  - Hypercholesterolaemia [Unknown]
  - Skin lesion [Unknown]

NARRATIVE: CASE EVENT DATE: 2008
